FAERS Safety Report 5104728-X (Version None)
Quarter: 2006Q3

REPORT INFORMATION
  Report Type: 
  Country: None (occurrence: None)
  Receive Date: 20060731
  Receipt Date: 20050729
  Transmission Date: 20061208
  Serious: Yes (Hospitalization)
  Sender: FDA-Public Use
  Company Number: US-JNJFOC-20050100825

PATIENT
  Age: 43 Year
  Sex: Male
  Weight: 55.7 kg

DRUGS (4)
  1. RISPERDAL [Suspect]
     Indication: SCHIZOPHRENIA
     Dosage: 6 MG, IN 1 DAY
     Dates: start: 20041108, end: 20041219
  2. RISPERDAL [Suspect]
     Indication: SCHIZOPHRENIA, PARANOID TYPE
     Dosage: 6 MG, IN 1 DAY
     Dates: start: 20041108, end: 20041219
  3. PLACEBO (PLACEBO) [Suspect]
     Indication: SCHIZOPHRENIA
     Dates: start: 20041108, end: 20041219
  4. BIFEPRUNOX (ANTIPSYCHOTICS) [Suspect]
     Indication: SCHIZOPHRENIA
     Dates: start: 20041108, end: 20041219

REACTIONS (3)
  - AKATHISIA [None]
  - INSOMNIA [None]
  - SCHIZOPHRENIA [None]
